FAERS Safety Report 10199225 (Version 1)
Quarter: 2014Q2

REPORT INFORMATION
  Report Type: Spontaneous
  Country: US (occurrence: US)
  Receive Date: 20140527
  Receipt Date: 20140527
  Transmission Date: 20141212
  Serious: No
  Sender: FDA-Public Use
  Company Number: US-VIVUS-2014V1000146

PATIENT
  Sex: Male

DRUGS (2)
  1. STENDRA [Suspect]
     Indication: PRODUCT USED FOR UNKNOWN INDICATION
     Route: 048
  2. STENDRA [Suspect]
     Route: 048

REACTIONS (1)
  - Drug ineffective [Not Recovered/Not Resolved]
